FAERS Safety Report 15546246 (Version 2)
Quarter: 2018Q4

REPORT INFORMATION
  Report Type: Spontaneous
  Country: DE (occurrence: DE)
  Receive Date: 20181024
  Receipt Date: 20181025
  Transmission Date: 20190205
  Serious: Yes (Other)
  Sender: FDA-Public Use
  Company Number: PHHY2018DE131394

PATIENT
  Age: 70 Year
  Sex: Male

DRUGS (2)
  1. SANDIMMUN [Suspect]
     Active Substance: CYCLOSPORINE
     Indication: TRANSPLANT
     Dosage: 60 MG, (50 MG AND 10 MG SOFT CAPSULE)
     Route: 065
  2. SANDIMMUN [Suspect]
     Active Substance: CYCLOSPORINE
     Dosage: 55 MG, (AS SINGLE DOSE)
     Route: 065

REACTIONS (1)
  - Neoplasm malignant [Unknown]
